FAERS Safety Report 16992053 (Version 1)
Quarter: 2019Q4

REPORT INFORMATION
  Report Type: Spontaneous
  Country: US (occurrence: US)
  Receive Date: 20191105
  Receipt Date: 20191105
  Transmission Date: 20200122
  Serious: No
  Sender: FDA-Public Use
  Company Number: US-JNJFOC-20191044680

PATIENT
  Age: 76 Year
  Sex: Female
  Weight: 56.75 kg

DRUGS (1)
  1. MENS ROGAINE [Suspect]
     Active Substance: MINOXIDIL
     Indication: ALOPECIA
     Dosage: 1 CUP?THE PRODUCT LAST ADMINISTERED ON 26/OCT/2019.
     Route: 061
     Dates: start: 20180531

REACTIONS (3)
  - Trichorrhexis [Not Recovered/Not Resolved]
  - Product use issue [Unknown]
  - Off label use [Unknown]

NARRATIVE: CASE EVENT DATE: 20180531
